FAERS Safety Report 20525721 (Version 1)
Quarter: 2022Q1

REPORT INFORMATION
  Report Type: Report from Study
  Country: EG (occurrence: EG)
  Receive Date: 20220228
  Receipt Date: 20220228
  Transmission Date: 20220423
  Serious: Yes (Other)
  Sender: FDA-Public Use
  Company Number: EG-NOVARTISPH-NVSC2022EG043351

PATIENT
  Age: 36 Year
  Sex: Female

DRUGS (2)
  1. COSENTYX [Suspect]
     Active Substance: SECUKINUMAB
     Indication: Ankylosing spondylitis
     Dosage: 150 MG, QW (1 PEN PER WEEK FOR A MONTH)
     Route: 065
     Dates: start: 20220121
  2. COSENTYX [Suspect]
     Active Substance: SECUKINUMAB
     Dosage: 150 MG (PEN EVERY 15 DAYS IN THE SECOND MONTH THEN ONE PEN MONTHLY)
     Route: 065

REACTIONS (3)
  - Mycobacterium tuberculosis complex test positive [Unknown]
  - Ankylosing spondylitis [Unknown]
  - Product prescribing error [Unknown]

NARRATIVE: CASE EVENT DATE: 20220121
